FAERS Safety Report 12947254 (Version 4)
Quarter: 2019Q3

REPORT INFORMATION
  Report Type: Report from Study
  Country: US (occurrence: US)
  Receive Date: 20161116
  Receipt Date: 20190815
  Transmission Date: 20191004
  Serious: Yes (Death, Hospitalization, Other)
  Sender: FDA-Public Use
  Company Number: US-SA-2016SA206164

PATIENT
  Age: 10 Year
  Sex: Male

DRUGS (4)
  1. ALGLUCOSIDASE ALFA [Suspect]
     Active Substance: ALGLUCOSIDASE ALFA
     Dosage: 1400, QOW
  2. ALGLUCOSIDASE ALFA [Suspect]
     Active Substance: ALGLUCOSIDASE ALFA
     Dosage: 1400, Q1
     Route: 041
  3. ALGLUCOSIDASE ALFA [Suspect]
     Active Substance: ALGLUCOSIDASE ALFA
     Dosage: 1500.00 (UNITS NOT GIVEN); FREQUENCY: Q2
     Route: 041
  4. ALGLUCOSIDASE ALFA [Suspect]
     Active Substance: ALGLUCOSIDASE ALFA
     Indication: GLYCOGEN STORAGE DISEASE TYPE II
     Dosage: 1500.00 (UNITS NOT GIVEN); FREQUENCY: Q2
     Route: 041
     Dates: start: 20060907

REACTIONS (14)
  - Apnoea [Not Recovered/Not Resolved]
  - Death [Fatal]
  - Salivary hypersecretion [Recovering/Resolving]
  - Oedema [Recovering/Resolving]
  - Feeling abnormal [Not Recovered/Not Resolved]
  - Hospice care [Not Recovered/Not Resolved]
  - Hemiparesis [Not Recovered/Not Resolved]
  - Rhinorrhoea [Recovering/Resolving]
  - Grip strength decreased [Not Recovered/Not Resolved]
  - Posture abnormal [Not Recovered/Not Resolved]
  - Decreased eye contact [Not Recovered/Not Resolved]
  - Ill-defined disorder [Recovering/Resolving]
  - Cognitive disorder [Not Recovered/Not Resolved]
  - Disease progression [Not Recovered/Not Resolved]

NARRATIVE: CASE EVENT DATE: 2017
